FAERS Safety Report 9511053 (Version 1)
Quarter: 2013Q3

REPORT INFORMATION
  Report Type: Spontaneous
  Country: US (occurrence: None)
  Receive Date: 20130905
  Receipt Date: 20130905
  Transmission Date: 20140515
  Serious: Yes (Hospitalization)
  Sender: FDA-Public Use
  Company Number: US-ALKEM-000127

PATIENT
  Age: 30 Year
  Sex: Female

DRUGS (2)
  1. MYCOPHENOLATE MOFETIL [Suspect]
     Indication: IMMUNOSUPPRESSION
  2. TACROLIMUS [Suspect]
     Indication: IMMUNOSUPPRESSION

REACTIONS (14)
  - Nocardiosis [None]
  - Mediastinal mass [None]
  - Dysphonia [None]
  - Pericardial effusion [None]
  - Cardiac tamponade [None]
  - Renal failure acute [None]
  - Mycobacterium fortuitum infection [None]
  - Pneumonia [None]
  - Tachycardia [None]
  - Renal ischaemia [None]
  - Thymoma [None]
  - Lymphoma [None]
  - Germ cell cancer [None]
  - Post transplant lymphoproliferative disorder [None]
